FAERS Safety Report 8790011 (Version 3)
Quarter: 2012Q4

REPORT INFORMATION
  Report Type: Report from Study
  Country: JP (occurrence: JP)
  Receive Date: 20120917
  Receipt Date: 20121228
  Transmission Date: 20130627
  Serious: Yes (Hospitalization)
  Sender: FDA-Public Use
  Company Number: JP-VERTEX PHARMACEUTICAL INC.-AE-2012-007323

PATIENT
  Age: 67 Year
  Sex: Male

DRUGS (15)
  1. VX-950 (TELAPREVIR) [Suspect]
     Indication: CHRONIC HEPATITIS C
     Dosage: 1500 mg, qd
     Route: 048
     Dates: start: 20120309, end: 20120513
  2. REBETOL [Suspect]
     Indication: CHRONIC HEPATITIS C
     Dosage: 400 mg, qd
     Route: 048
     Dates: start: 20120309, end: 20120502
  3. REBETOL [Suspect]
     Dosage: 200 mg, qd
     Route: 048
     Dates: start: 20120503, end: 20120513
  4. REBETOL [Suspect]
     Dosage: 200 mg, qd
     Route: 048
     Dates: start: 20120531, end: 20120704
  5. REBETOL [Suspect]
     Dosage: 400 mg, qd
     Route: 048
     Dates: start: 20120705, end: 20120906
  6. PEGINTRON [Suspect]
     Indication: CHRONIC HEPATITIS C
     Dosage: 1.4 ?g/kg, week
     Route: 058
     Dates: start: 20120309, end: 20120509
  7. PEGINTRON [Suspect]
     Dosage: 0.75 ?g/kg, week
     Route: 058
     Dates: start: 20120510, end: 20120513
  8. PEGINTRON [Suspect]
     Dosage: 50 ?g, week
     Route: 058
     Dates: start: 20120531, end: 20120628
  9. PEGINTRON [Suspect]
     Dosage: 100 ?g, week
     Route: 058
     Dates: start: 20120629, end: 20120830
  10. URSO                               /00465701/ [Concomitant]
     Dosage: 600 mg, qd
     Route: 048
  11. NORVASC [Concomitant]
     Dosage: 5 mg, qd
     Route: 048
  12. TAKEPRON [Concomitant]
     Dosage: 15 mg, qd
     Route: 048
     Dates: end: 20120509
  13. TAKEPRON [Concomitant]
     Dosage: 30 mg, qd
     Route: 048
  14. HARNAL [Concomitant]
     Dosage: 0.2 mg, qd
     Route: 048
  15. TANATRIL [Concomitant]
     Dosage: 2.5 mg, qd
     Route: 048

REACTIONS (1)
  - Pleural effusion [Recovered/Resolved]
